FAERS Safety Report 20756986 (Version 9)
Quarter: 2023Q1

REPORT INFORMATION
  Report Type: Spontaneous
  Country: US (occurrence: US)
  Receive Date: 20220427
  Receipt Date: 20230103
  Transmission Date: 20230417
  Serious: Yes (Other)
  Sender: FDA-Public Use
  Company Number: US-PFIZER INC-2020428363

PATIENT
  Age: 68 Year
  Sex: Female
  Weight: 106.59 kg

DRUGS (3)
  1. ZARONTIN [Suspect]
     Active Substance: ETHOSUXIMIDE
     Indication: Generalised tonic-clonic seizure
     Dosage: 750 MG, 2X/DAY
     Route: 048
     Dates: start: 202203
  2. ZARONTIN [Suspect]
     Active Substance: ETHOSUXIMIDE
     Indication: Epilepsy
  3. ZARONTIN [Suspect]
     Active Substance: ETHOSUXIMIDE
     Indication: Petit mal epilepsy

REACTIONS (5)
  - Tenoplasty [Unknown]
  - Body height decreased [Unknown]
  - Poor quality product administered [Unknown]
  - Product physical issue [Unknown]
  - Intentional product use issue [Unknown]

NARRATIVE: CASE EVENT DATE: 20220301
